FAERS Safety Report 6725863-6 (Version None)
Quarter: 2010Q2

REPORT INFORMATION
  Report Type: 
  Country: None (occurrence: None)
  Receive Date: 20100512
  Receipt Date: 20100427
  Transmission Date: 20101027
  Serious: Yes (Hospitalization)
  Sender: FDA-Public Use
  Company Number: 7003033

PATIENT
  Sex: Female

DRUGS (5)
  1. REBIF [Suspect]
     Indication: MULTIPLE SCLEROSIS
     Dosage: 44 MCG, 3 IN 1 WK, SUBCUTANEOUS
     Route: 058
     Dates: start: 20040705
  2. MANTIDAN (AMANTADINE HYDROCHLORIDE) [Concomitant]
  3. FLUOXETINE [Concomitant]
  4. ANTAK (RANITIDINE HYDROCHLORIDE) [Concomitant]
  5. MIOSAN (CYCLOBENZAPRINE HYDROCHLORIDE) [Concomitant]

REACTIONS (1)
  - URINARY TRACT INFECTION [None]
